FAERS Safety Report 13838580 (Version 1)
Quarter: 2017Q3

REPORT INFORMATION
  Report Type: Spontaneous
  Country: US (occurrence: US)
  Receive Date: 20170804
  Receipt Date: 20170804
  Transmission Date: 20171127
  Serious: Yes (Other)
  Sender: FDA-Public Use
  Company Number: None

PATIENT
  Age: 54 Year
  Sex: Male

DRUGS (11)
  1. MORPHINE [Concomitant]
     Active Substance: MORPHINE
  2. LOSARTAN. [Concomitant]
     Active Substance: LOSARTAN
  3. MIRALAX [Concomitant]
     Active Substance: POLYETHYLENE GLYCOL 3350
  4. DULOXETINE. [Concomitant]
     Active Substance: DULOXETINE
  5. LIDOCAINE OINTMENT [Concomitant]
     Active Substance: LIDOCAINE
  6. WARFARIN [Concomitant]
     Active Substance: WARFARIN
  7. NORTRIPTYLINE [Concomitant]
     Active Substance: NORTRIPTYLINE
  8. METOPROLOL. [Concomitant]
     Active Substance: METOPROLOL
  9. ZOLPIDEM [Concomitant]
     Active Substance: ZOLPIDEM\ZOLPIDEM TARTRATE
  10. ISOSORBIDE. [Concomitant]
     Active Substance: ISOSORBIDE
  11. DIGOXIN. [Suspect]
     Active Substance: DIGOXIN
     Indication: PRODUCT USED FOR UNKNOWN INDICATION
     Route: 048

REACTIONS (3)
  - Gynaecomastia [None]
  - Hyperaesthesia [None]
  - Breast tenderness [None]

NARRATIVE: CASE EVENT DATE: 20170101
